FAERS Safety Report 6368055-5 (Version None)
Quarter: 2009Q3

REPORT INFORMATION
  Report Type: 
  Country: None (occurrence: None)
  Receive Date: 20090922
  Receipt Date: 20090915
  Transmission Date: 20100115
  Serious: Yes (Other)
  Sender: FDA-Public Use
  Company Number: US-JNJFOC-20090607513

PATIENT
  Sex: Female
  Weight: 65.77 kg

DRUGS (4)
  1. TOPAMAX [Suspect]
     Route: 048
  2. TOPAMAX [Suspect]
     Indication: MIGRAINE PROPHYLAXIS
     Dosage: 100 MG - 2 TABS A DAY
     Route: 048
  3. ZOLOFT [Suspect]
     Indication: BIPOLAR DISORDER
     Route: 048
  4. LORAZEPAM [Concomitant]
     Indication: BIPOLAR DISORDER
     Route: 048

REACTIONS (3)
  - CARBON DIOXIDE DECREASED [None]
  - METABOLIC ACIDOSIS [None]
  - PANIC ATTACK [None]
